FAERS Safety Report 15297616 (Version 1)
Quarter: 2018Q3

REPORT INFORMATION
  Report Type: Spontaneous
  Country: FR (occurrence: FR)
  Receive Date: 20180820
  Receipt Date: 20180820
  Transmission Date: 20181010
  Serious: Yes (Death)
  Sender: FDA-Public Use
  Company Number: FR-SA-2018SA219906

PATIENT
  Age: 78 Year
  Sex: Male
  Weight: 56 kg

DRUGS (2)
  1. TAXOTERE [Suspect]
     Active Substance: DOCETAXEL
     Indication: PROSTATE CANCER METASTATIC
     Dosage: UNK
     Route: 042
     Dates: start: 20180430, end: 20180430
  2. TAXOTERE [Suspect]
     Active Substance: DOCETAXEL
     Dosage: UNK UNK, UNK
     Route: 042
     Dates: start: 20180619, end: 20180619

REACTIONS (4)
  - Dry skin [Fatal]
  - Mucosal inflammation [Fatal]
  - Melaena [Fatal]
  - Aphthous ulcer [Fatal]

NARRATIVE: CASE EVENT DATE: 20180628
